FAERS Safety Report 25330471 (Version 1)
Quarter: 2025Q2

REPORT INFORMATION
  Report Type: Spontaneous
  Country: US (occurrence: None)
  Receive Date: 20250518
  Receipt Date: 20250518
  Transmission Date: 20250717
  Serious: No
  Sender: FDA-CTU
  Company Number: None

PATIENT
  Age: 71 Year
  Sex: Female

DRUGS (14)
  1. OPZELURA [Suspect]
     Active Substance: RUXOLITINIB PHOSPHATE
     Indication: Dermatitis atopic
     Dosage: FREQUENCY : TWICE A DAY;?
     Route: 061
     Dates: start: 20250124
  2. MUPIROCIN [Concomitant]
     Active Substance: MUPIROCIN
  3. Eszopiclone 3MG tablets [Concomitant]
  4. Epipen 2-pak 0.3mg/0.3mL SOAJ [Concomitant]
  5. Duloxetine HCL 60mg tablets [Concomitant]
  6. Azelastine HCL 137mcg/spray soln [Concomitant]
  7. Amlodipine Besylate Tablet 2.5MG [Concomitant]
  8. ESCITALOPRAM OXALATE [Concomitant]
     Active Substance: ESCITALOPRAM OXALATE
  9. Premarin 0.625 mg/gm cream [Concomitant]
  10. BENZONATATE [Concomitant]
     Active Substance: BENZONATATE
  11. Nystatin-Triamcinol 100000-0.1 cream [Concomitant]
  12. Esomeprazole 40mg capsules [Concomitant]
  13. CLOBETASOL PROPIONATE [Concomitant]
     Active Substance: CLOBETASOL PROPIONATE
  14. ACYCLOVIR [Concomitant]
     Active Substance: ACYCLOVIR

REACTIONS (3)
  - Application site pruritus [None]
  - Rhinorrhoea [None]
  - Therapy interrupted [None]

NARRATIVE: CASE EVENT DATE: 20250518
